FAERS Safety Report 9005145 (Version 2)
Quarter: 2013Q2

REPORT INFORMATION
  Report Type: Spontaneous
  Country: US (occurrence: None)
  Receive Date: 20120515
  Receipt Date: 20120817
  Transmission Date: 20140414
  Serious: Yes (Hospitalization, Disabling)
  Sender: FDA-Public Use
  Company Number: PHEH2012US003667

PATIENT
  Age: 30 Year
  Sex: Male
  Weight: 88.1 kg

DRUGS (8)
  1. ZORTRESS [Suspect]
     Indication: TRANSPLANT
     Route: 048
     Dates: start: 20111024
  2. PROGRAFT (TACROLIMUS) [Concomitant]
  3. PREDNISONE (PREDNISONE) [Concomitant]
  4. ASPIRIN (ACETYLSALICYLIC ACID) [Concomitant]
  5. TUMS (CALCIUM CARBONATE) [Concomitant]
  6. MAGNESIUM OXIDE (MAGNESIUM OXIDE) [Concomitant]
  7. REGLAN (METOCLOPRAMIDE HYDROCHLORIDE) [Concomitant]
  8. HYDRALAZINE (HYDRALAZINE) [Concomitant]

REACTIONS (2)
  - Mouth ulceration [None]
  - Inflammation [None]
